FAERS Safety Report 16898298 (Version 7)
Quarter: 2025Q1

REPORT INFORMATION
  Report Type: Spontaneous
  Country: DE (occurrence: DE)
  Receive Date: 20191009
  Receipt Date: 20250318
  Transmission Date: 20250408
  Serious: Yes (Life-Threatening, Hospitalization, Other)
  Sender: AUROBINDO
  Company Number: None

PATIENT
  Sex: Female

DRUGS (3)
  1. LETROZOLE [Suspect]
     Active Substance: LETROZOLE
     Indication: Breast cancer metastatic
     Dosage: 2.5 MILLIGRAM, ONCE A DAY, (1-0-0)
     Route: 048
     Dates: start: 20190123, end: 20190920
  2. KISQALI [Suspect]
     Active Substance: RIBOCICLIB
     Indication: Breast cancer metastatic
     Route: 048
     Dates: start: 20190123, end: 20190616
  3. KISQALI [Suspect]
     Active Substance: RIBOCICLIB
     Route: 048
     Dates: start: 20190703, end: 20190920

REACTIONS (4)
  - Pneumonia aspiration [Recovered/Resolved]
  - Encephalitis [Not Recovered/Not Resolved]
  - Encephalitis herpes [Not Recovered/Not Resolved]
  - Meningitis [Recovered/Resolved with Sequelae]

NARRATIVE: CASE EVENT DATE: 20190921
